FAERS Safety Report 5164295-1 (Version None)
Quarter: 2006Q4

REPORT INFORMATION
  Report Type: 
  Country: None (occurrence: None)
  Receive Date: 20061205
  Receipt Date: 20061025
  Transmission Date: 20070319
  Serious: Yes (Hospitalization)
  Sender: FDA-Public Use
  Company Number: PHHO2006JP17872

PATIENT
  Age: 86 Year
  Sex: Female
  Weight: 46 kg

DRUGS (8)
  1. DIOVAN [Suspect]
     Indication: HYPERTENSION
     Dosage: 80 MG, QD
     Route: 048
     Dates: start: 20030722, end: 20050712
  2. ADALAT [Concomitant]
     Indication: HYPERTENSION
  3. ASPIRIN [Concomitant]
     Indication: ANGINA PECTORIS
  4. LANSOPRAZOLE [Concomitant]
     Indication: REFLUX OESOPHAGITIS
  5. ARTIST [Concomitant]
     Indication: HYPERTENSION
  6. NORVASC [Concomitant]
     Indication: HYPERTENSION
  7. FLUITRAN [Concomitant]
     Indication: HYPERTENSION
  8. NITOROL [Concomitant]
     Indication: ANGINA PECTORIS

REACTIONS (1)
  - FEMUR FRACTURE [None]
